FAERS Safety Report 7138101-X (Version None)
Quarter: 2010Q4

REPORT INFORMATION
  Report Type: 
  Country: None (occurrence: None)
  Receive Date: 20101206
  Receipt Date: 20101125
  Transmission Date: 20110411
  Serious: Yes (Other)
  Sender: FDA-Public Use
  Company Number: JP-JNJFOC-20101108858

PATIENT
  Sex: Male
  Weight: 58 kg

DRUGS (9)
  1. LEUSTATIN [Suspect]
     Indication: HAIRY CELL LEUKAEMIA
     Route: 041
  2. LEUSTATIN [Suspect]
     Route: 041
  3. GRAN [Concomitant]
     Route: 058
  4. GASTER D [Concomitant]
     Indication: PROPHYLAXIS
     Route: 048
  5. MUCOSTA [Concomitant]
     Indication: PROPHYLAXIS
     Route: 048
  6. DIFLUCAN [Concomitant]
     Indication: PROPHYLAXIS
     Route: 048
  7. URINORM [Concomitant]
     Indication: GOUT
     Route: 048
  8. ZYLORIC [Concomitant]
     Indication: PROPHYLAXIS
     Route: 048
  9. BAKTAR [Concomitant]
     Indication: PROPHYLAXIS
     Route: 048

REACTIONS (15)
  - ANAEMIA [None]
  - BASOPHILIA [None]
  - BLOOD LACTATE DEHYDROGENASE INCREASED [None]
  - DRUG ERUPTION [None]
  - ERYTHEMA [None]
  - HYPERCHLORAEMIA [None]
  - HYPOPROTEINAEMIA [None]
  - LIVER INJURY [None]
  - LYMPHOPENIA [None]
  - NEUTROPENIA [None]
  - NEUTROPHIL COUNT DECREASED [None]
  - PLATELET COUNT DECREASED [None]
  - PULMONARY EOSINOPHILIA [None]
  - RENAL IMPAIRMENT [None]
  - WHITE BLOOD CELL COUNT DECREASED [None]
